FAERS Safety Report 8379920-1 (Version None)
Quarter: 2012Q2

REPORT INFORMATION
  Report Type: 
  Country: None (occurrence: None)
  Receive Date: 20120523
  Receipt Date: 20120521
  Transmission Date: 20120825
  Serious: Yes (Other)
  Sender: FDA-Public Use
  Company Number: US-PFIZER INC-2012122855

PATIENT
  Sex: Female
  Weight: 68.027 kg

DRUGS (4)
  1. CHANTIX [Suspect]
     Indication: SMOKING CESSATION THERAPY
     Dosage: 0.5 MG, 1X/DAY
     Route: 048
     Dates: start: 20100101, end: 20100101
  2. HYDROCHLOROTHIAZIDE [Concomitant]
     Indication: HYPERTENSION
     Dosage: 25 MG, UNK
  3. DILTIAZEM [Concomitant]
     Indication: HYPERTENSION
     Dosage: 300 MG, UNK
  4. CHANTIX [Suspect]
     Dosage: UNK
     Route: 048
     Dates: start: 20100101, end: 20100101

REACTIONS (3)
  - SLEEP DISORDER [None]
  - ABNORMAL DREAMS [None]
  - ARTHROPATHY [None]
